FAERS Safety Report 4447898-9 (Version None)
Quarter: 2004Q3

REPORT INFORMATION
  Report Type: 
  Country: None (occurrence: None)
  Receive Date: 20040729
  Receipt Date: 20040211
  Transmission Date: 20050211
  Serious: Yes (Hospitalization)
  Sender: FDA-Public Use
  Company Number: SAGL-ZLB/04/02/FRA

PATIENT
  Age: 74 Year
  Sex: Male

DRUGS (1)
  1. SANDOGLOBULIN [Suspect]
     Indication: DRUG USE FOR UNKNOWN INDICATION
     Dosage: 78 G, I.V.
     Route: 042
     Dates: start: 20040203, end: 20040203

REACTIONS (4)
  - ANAPHYLACTIC SHOCK [None]
  - BODY TEMPERATURE INCREASED [None]
  - CHILLS [None]
  - FLUSHING [None]
